FAERS Safety Report 8118986-0 (Version None)
Quarter: 2012Q1

REPORT INFORMATION
  Report Type: 
  Country: None (occurrence: None)
  Receive Date: 20120207
  Receipt Date: 20120126
  Transmission Date: 20120608
  Serious: Yes (Hospitalization)
  Sender: FDA-Public Use
  Company Number: US-PFIZER INC-2011301454

PATIENT
  Sex: Female
  Weight: 55 kg

DRUGS (9)
  1. POTASSIUM CHLORIDE [Concomitant]
     Dosage: UNK
     Dates: start: 20111103
  2. LANOXIN [Concomitant]
     Dosage: UNK
     Dates: start: 20111103
  3. PEPCID [Concomitant]
     Dosage: UNK
     Dates: start: 20110419
  4. FENTANYL [Concomitant]
     Dosage: UNK
     Dates: start: 20110101
  5. CRIZOTINIB [Suspect]
     Indication: NON-SMALL CELL LUNG CANCER
     Dosage: 250 MG, 2X/DAY
     Route: 048
     Dates: start: 20110628, end: 20111210
  6. LIPITOR [Concomitant]
     Dosage: UNK
     Dates: start: 20110419
  7. MAGNESIUM OXIDE [Concomitant]
     Dosage: UNK
     Dates: start: 20111103
  8. LOPRESSOR [Suspect]
     Indication: HYPERTENSION
     Dosage: 25 MG, 1X/DAY
     Route: 048
     Dates: start: 20110419
  9. WARFARIN [Concomitant]
     Dosage: UNK
     Dates: start: 20110525

REACTIONS (1)
  - HYPOTENSION [None]
